FAERS Safety Report 20779309 (Version 2)
Quarter: 2022Q3

REPORT INFORMATION
  Report Type: Spontaneous
  Country: JP (occurrence: JP)
  Receive Date: 20220503
  Receipt Date: 20220708
  Transmission Date: 20221027
  Serious: Yes (Hospitalization, Other)
  Sender: FDA-Public Use
  Company Number: JP-BAYER-2022A024244

PATIENT
  Age: 71 Year
  Sex: Male
  Weight: 68.3 kg

DRUGS (6)
  1. XARELTO [Suspect]
     Active Substance: RIVAROXABAN
     Indication: Atrial fibrillation
     Dosage: DAILY DOSE 10MG
     Route: 048
     Dates: start: 20211011, end: 20220113
  2. XARELTO [Suspect]
     Active Substance: RIVAROXABAN
     Indication: Thrombosis prophylaxis
     Route: 048
  3. BISOPROLOL FUMARATE [Concomitant]
     Active Substance: BISOPROLOL FUMARATE
     Indication: Cardiac failure chronic
     Dosage: DAILY DOSE 2.5 MG
     Dates: start: 2017
  4. TOLVAPTAN [Concomitant]
     Active Substance: TOLVAPTAN
     Indication: Cardiac failure chronic
     Dosage: DAILY DOSE 3.75 MG
     Dates: start: 20211021
  5. ALLOPURINOL [Concomitant]
     Active Substance: ALLOPURINOL
     Indication: Hyperuricaemia
     Dosage: DAILY DOSE 300 MG
     Dates: start: 2017
  6. AMLODIPINE [Concomitant]
     Active Substance: AMLODIPINE BESYLATE
     Indication: Hypertension
     Dosage: DAILY DOSE 5 MG
     Dates: start: 2017

REACTIONS (4)
  - Organising pneumonia [Recovered/Resolved]
  - Cardiac failure chronic [Recovering/Resolving]
  - Pulmonary alveolar haemorrhage [Unknown]
  - Haemoptysis [Recovered/Resolved]

NARRATIVE: CASE EVENT DATE: 20211229
